FAERS Safety Report 17863152 (Version 3)
Quarter: 2020Q3

REPORT INFORMATION
  Report Type: Spontaneous
  Country: US (occurrence: US)
  Receive Date: 20200604
  Receipt Date: 20200925
  Transmission Date: 20201103
  Serious: Yes (Other)
  Sender: FDA-Public Use
  Company Number: US-GILEAD-2020-0469911

PATIENT
  Age: 62 Year
  Sex: Male
  Weight: 81.63 kg

DRUGS (78)
  1. DESCOVY [Concomitant]
     Active Substance: EMTRICITABINE\TENOFOVIR ALAFENAMIDE FUMARATE
  2. ATORVASTATIN CALCIUM. [Concomitant]
     Active Substance: ATORVASTATIN CALCIUM
  3. DOCUSATE [Concomitant]
     Active Substance: DOCUSATE
  4. SENNOSIDES. [Concomitant]
     Active Substance: SENNOSIDES
  5. CLOTRIMAZOLE. [Concomitant]
     Active Substance: CLOTRIMAZOLE
  6. SILDENAFIL. [Concomitant]
     Active Substance: SILDENAFIL
  7. CIPROFLOXACIN. [Concomitant]
     Active Substance: CIPROFLOXACIN
  8. ACETAMINOPHEN W/OXYCODONE [Concomitant]
     Active Substance: ACETAMINOPHEN\OXYCODONE HYDROCHLORIDE
  9. MORPHINE SULFATE. [Concomitant]
     Active Substance: MORPHINE SULFATE
  10. PREDNISOLONE ACETATE. [Concomitant]
     Active Substance: PREDNISOLONE ACETATE
  11. ONDANSETRON [Concomitant]
     Active Substance: ONDANSETRON
  12. FLUNISOLIDE. [Concomitant]
     Active Substance: FLUNISOLIDE
  13. TERBINAFINE HCL [Concomitant]
     Active Substance: TERBINAFINE HYDROCHLORIDE
  14. TRUVADA [Suspect]
     Active Substance: EMTRICITABINE\TENOFOVIR DISOPROXIL FUMARATE
     Dosage: UNK
     Route: 048
     Dates: start: 201509, end: 201702
  15. BIKTARVY [Concomitant]
     Active Substance: BICTEGRAVIR SODIUM\EMTRICITABINE\TENOFOVIR ALAFENAMIDE FUMARATE
  16. OMEPRAZOLE. [Concomitant]
     Active Substance: OMEPRAZOLE
  17. RANITIDINE. [Concomitant]
     Active Substance: RANITIDINE
  18. TRIAMTERENE + HCTZ [Concomitant]
     Active Substance: HYDROCHLOROTHIAZIDE\TRIAMTERENE
  19. DICLOFENAC [Concomitant]
     Active Substance: DICLOFENAC
  20. MIRALAX [Concomitant]
     Active Substance: POLYETHYLENE GLYCOL 3350
  21. METOPROLOL TARTRATE. [Concomitant]
     Active Substance: METOPROLOL TARTRATE
  22. MILK OF MAGNESIA [Concomitant]
     Active Substance: MAGNESIUM HYDROXIDE
  23. BISACODYL. [Concomitant]
     Active Substance: BISACODYL
  24. PSYLLIUM [PLANTAGO PSYLLIUM] [Concomitant]
  25. CYCLOBENZAPRINE HCL [Concomitant]
     Active Substance: CYCLOBENZAPRINE HYDROCHLORIDE
  26. AUGMENTIN [Concomitant]
     Active Substance: AMOXICILLIN\CLAVULANATE POTASSIUM
  27. TRUVADA [Suspect]
     Active Substance: EMTRICITABINE\TENOFOVIR DISOPROXIL FUMARATE
     Indication: HIV INFECTION
     Dosage: UNK
     Route: 048
     Dates: start: 200804, end: 201303
  28. ASPIRIN [ACETYLSALICYLIC ACID] [Concomitant]
     Active Substance: ASPIRIN
  29. PREDNISOLONE. [Concomitant]
     Active Substance: PREDNISOLONE
  30. IBUPROFEN. [Concomitant]
     Active Substance: IBUPROFEN
  31. CEPHALEXIN [CEFALEXIN] [Concomitant]
     Active Substance: CEPHALEXIN
  32. MICONAZOLE NITRATE. [Concomitant]
     Active Substance: MICONAZOLE NITRATE
  33. CODEINE [Concomitant]
     Active Substance: CODEINE
  34. LACTULOSE. [Concomitant]
     Active Substance: LACTULOSE
  35. NYSTATIN. [Concomitant]
     Active Substance: NYSTATIN
  36. TRUVADA [Suspect]
     Active Substance: EMTRICITABINE\TENOFOVIR DISOPROXIL FUMARATE
     Dosage: UNK
     Route: 048
     Dates: start: 201402, end: 201702
  37. AMOXICILLIN. [Concomitant]
     Active Substance: AMOXICILLIN
  38. TIVICAY [Concomitant]
     Active Substance: DOLUTEGRAVIR SODIUM
  39. CAPSAICIN. [Concomitant]
     Active Substance: CAPSAICIN
  40. EFFEXOR [Concomitant]
     Active Substance: VENLAFAXINE HYDROCHLORIDE
  41. GOLYTELY [Concomitant]
     Active Substance: POLYETHYLENE GLYCOL 3350\POTASSIUM CHLORIDE\SODIUM BICARBONATE\SODIUM CHLORIDE\SODIUM SULFATE ANHYDROUS
  42. GUAFENSIN [Concomitant]
  43. SERTRALINE HCL [Concomitant]
     Active Substance: SERTRALINE HYDROCHLORIDE
  44. TRUVADA [Suspect]
     Active Substance: EMTRICITABINE\TENOFOVIR DISOPROXIL FUMARATE
     Dosage: UNK
     Route: 048
     Dates: start: 201402, end: 201507
  45. COMPLERA [Suspect]
     Active Substance: EMTRICITABINE\RILPIVIRINE HYDROCHLORIDE\TENOFOVIR DISOPROXIL FUMARATE
     Indication: HIV INFECTION
     Dosage: UNK
     Route: 048
     Dates: start: 201303, end: 201402
  46. COMPLERA [Suspect]
     Active Substance: EMTRICITABINE\RILPIVIRINE HYDROCHLORIDE\TENOFOVIR DISOPROXIL FUMARATE
     Dosage: UNK
     Route: 048
     Dates: start: 201303, end: 201401
  47. EPIVIR [Concomitant]
     Active Substance: LAMIVUDINE
  48. VIRACEPT [Concomitant]
     Active Substance: NELFINAVIR MESYLATE
  49. MELOXICAM. [Concomitant]
     Active Substance: MELOXICAM
  50. NALOXONE HCL [Concomitant]
     Active Substance: NALOXONE HYDROCHLORIDE
  51. DOXYCYCLINE HYCLATE. [Concomitant]
     Active Substance: DOXYCYCLINE HYCLATE
  52. AZITHROMYCIN ANHYDROUS. [Concomitant]
     Active Substance: AZITHROMYCIN ANHYDROUS
  53. TERAZOSIN HCL [Concomitant]
     Active Substance: TERAZOSIN HYDROCHLORIDE
  54. VARDENAFIL [Concomitant]
     Active Substance: VARDENAFIL HYDROCHLORIDE
  55. ATROPINE. [Concomitant]
     Active Substance: ATROPINE
  56. THIAMINE. [Concomitant]
     Active Substance: THIAMINE
  57. ISENTRESS [Concomitant]
     Active Substance: RALTEGRAVIR POTASSIUM
  58. TRAZODONE HYDROCHLORIDE. [Concomitant]
     Active Substance: TRAZODONE HYDROCHLORIDE
  59. BACITRACIN. [Concomitant]
     Active Substance: BACITRACIN
  60. LEDIPASVIR [Concomitant]
     Active Substance: LEDIPASVIR
  61. EMTRICITABINE [Concomitant]
     Active Substance: EMTRICITABINE
  62. FOLATE [Concomitant]
     Active Substance: FOLATE SODIUM
  63. CHLORHEXIDINE GLUCONATE. [Concomitant]
     Active Substance: CHLORHEXIDINE GLUCONATE
  64. METHADONE [Concomitant]
     Active Substance: METHADONE HYDROCHLORIDE
  65. PRAZOSIN HCL [Concomitant]
     Active Substance: PRAZOSIN HYDROCHLORIDE
  66. FLUCONAZOLE. [Concomitant]
     Active Substance: FLUCONAZOLE
  67. PROCHLORPERAZINE MALEATE. [Concomitant]
     Active Substance: PROCHLORPERAZINE MALEATE
  68. ATRIPLA [Suspect]
     Active Substance: EFAVIRENZ\EMTRICITABINE\TENOFOVIR DISOPROXIL FUMARATE
     Indication: HIV INFECTION
     Dosage: UNK
     Route: 048
     Dates: start: 200804, end: 201303
  69. TRIUMEQ [Concomitant]
     Active Substance: ABACAVIR SULFATE\DOLUTEGRAVIR SODIUM\LAMIVUDINE
  70. ZERIT [Concomitant]
     Active Substance: STAVUDINE
  71. TIZANIDINE HCL [Concomitant]
     Active Substance: TIZANIDINE HYDROCHLORIDE
  72. LORATADINE. [Concomitant]
     Active Substance: LORATADINE
  73. CLINDAMYCIN HCL [Concomitant]
     Active Substance: CLINDAMYCIN HYDROCHLORIDE
  74. BACLOFEN. [Concomitant]
     Active Substance: BACLOFEN
  75. GABAPENTIN. [Concomitant]
     Active Substance: GABAPENTIN
  76. CLONIDINE HCL [Concomitant]
     Active Substance: CLONIDINE HYDROCHLORIDE
  77. STAVUDINE. [Concomitant]
     Active Substance: STAVUDINE
  78. NICOTINE. [Concomitant]
     Active Substance: NICOTINE

REACTIONS (4)
  - Bone density decreased [Unknown]
  - Tooth loss [Not Recovered/Not Resolved]
  - Osteoporosis [Unknown]
  - Ankle fracture [Not Recovered/Not Resolved]

NARRATIVE: CASE EVENT DATE: 2016
